FAERS Safety Report 9047367 (Version 2)
Quarter: 2013Q1

REPORT INFORMATION
  Report Type: Spontaneous
  Country: GB (occurrence: GB)
  Receive Date: 20130201
  Receipt Date: 20130301
  Transmission Date: 20140127
  Serious: Yes (Other)
  Sender: FDA-Public Use
  Company Number: GB-VERTEX PHARMACEUTICALS INC.-2013-001422

PATIENT
  Sex: Female

DRUGS (11)
  1. INCIVO [Suspect]
     Indication: PRODUCT USED FOR UNKNOWN INDICATION
     Route: 048
  2. INCIVO [Suspect]
     Route: 048
  3. PEGYLATED INTERFERON [Concomitant]
     Indication: HEPATITIS C
     Route: 058
     Dates: start: 20121122, end: 20121210
  4. RIBAVIRIN [Concomitant]
     Indication: HEPATITIS C
     Route: 048
     Dates: start: 20121122, end: 20121211
  5. ADCAL [Concomitant]
     Dosage: 2 TABS
  6. ACICLOVIR [Concomitant]
     Indication: EYE DISORDER
     Dosage: DOSAGE FORM: TABLETS, 2 TABS
  7. ALENDRONIC ACID [Concomitant]
     Dosage: UNK
  8. LEVOTHYROXINE [Concomitant]
     Dosage: 100 MG, UNK
  9. PREDNISOLONE [Concomitant]
     Indication: EYE DISORDER
     Dosage: 15 MG, UNK
  10. METHADONE [Concomitant]
     Dosage: 80 ML, UNK
  11. RANITIDINE [Concomitant]
     Dosage: 150 MG, UNK

REACTIONS (4)
  - Visual impairment [Recovered/Resolved]
  - Visual acuity reduced [Recovered/Resolved]
  - Rash [Recovered/Resolved]
  - Dysgeusia [Recovered/Resolved]
